FAERS Safety Report 8062026-9 (Version None)
Quarter: 2012Q1

REPORT INFORMATION
  Report Type: 
  Country: None (occurrence: None)
  Receive Date: 20120123
  Receipt Date: 20120118
  Transmission Date: 20120608
  Serious: Yes (Life-Threatening, Hospitalization)
  Sender: FDA-Public Use
  Company Number: US-CELGENEUS-163-21880-11120974

PATIENT
  Sex: Female
  Weight: 56 kg

DRUGS (7)
  1. ASPIRIN [Concomitant]
     Route: 065
  2. REVLIMID [Suspect]
     Indication: MULTIPLE MYELOMA
     Dosage: 10 MILLIGRAM
     Route: 048
     Dates: start: 20110605
  3. SIMVASTATIN [Concomitant]
     Route: 065
  4. COLESTIPOL HYDROCHLORIDE [Concomitant]
     Route: 065
  5. RANITIDINE [Concomitant]
     Route: 065
  6. CITALOPRAM [Concomitant]
     Route: 065
  7. REVLIMID [Suspect]
     Dosage: 10 MILLIGRAM
     Route: 048
     Dates: start: 20110705

REACTIONS (6)
  - FALL [None]
  - FLATULENCE [None]
  - RASH [None]
  - JOINT SWELLING [None]
  - ARTHRALGIA [None]
  - BACK PAIN [None]
